FAERS Safety Report 13143849 (Version 2)
Quarter: 2017Q1

REPORT INFORMATION
  Report Type: Spontaneous
  Country: CN (occurrence: CN)
  Receive Date: 20170124
  Receipt Date: 20170301
  Transmission Date: 20170428
  Serious: Yes (Other)
  Sender: FDA-Public Use
  Company Number: CN-SUN PHARMACEUTICAL INDUSTRIES LTD-2017RR-131952

PATIENT
  Age: 35 Year
  Sex: Female

DRUGS (3)
  1. DOXORUBICIN [Suspect]
     Active Substance: DOXORUBICIN
     Indication: DESMOID TUMOUR
     Dosage: 20 MG/M2 DAILY; THROUGHOUT 4 DAYS OF DRIP EVERY 28 DAY
     Route: 041
     Dates: start: 20121011
  2. DTIC [Suspect]
     Active Substance: DACARBAZINE
     Indication: DESMOID TUMOUR
     Dosage: 150 MG/M2 DAILY; THROUGHOUT 4 DAYS OF DRIP EVERY 28 DAY
     Route: 041
     Dates: start: 20121011
  3. MELOXICAM. [Suspect]
     Active Substance: MELOXICAM
     Indication: DESMOID TUMOUR
     Dosage: 10 MG/M2, CYCLICAL
     Route: 065
     Dates: start: 20121011

REACTIONS (1)
  - Intestinal perforation [Recovered/Resolved with Sequelae]
